FAERS Safety Report 12635911 (Version 1)
Quarter: 2016Q3

REPORT INFORMATION
  Report Type: Spontaneous
  Country: US (occurrence: US)
  Receive Date: 20160809
  Receipt Date: 20160809
  Transmission Date: 20161109
  Serious: No
  Sender: FDA-Public Use
  Company Number: US-PFIZER INC-2016376784

PATIENT
  Sex: Female

DRUGS (2)
  1. LIPITOR [Suspect]
     Active Substance: ATORVASTATIN CALCIUM
     Indication: BLOOD CHOLESTEROL
     Dosage: 20 MG, UNK
  2. LIPITOR [Suspect]
     Active Substance: ATORVASTATIN CALCIUM
     Dosage: 5 MG, DAILY (CUTTING THE 10MG TABLETS IN HALF)

REACTIONS (5)
  - Musculoskeletal discomfort [Unknown]
  - Back pain [Unknown]
  - Gait disturbance [Unknown]
  - Renal pain [Unknown]
  - Muscle enzyme increased [Unknown]
